FAERS Safety Report 24570022 (Version 1)
Quarter: 2024Q4

REPORT INFORMATION
  Report Type: Spontaneous
  Country: US (occurrence: US)
  Receive Date: 20241031
  Receipt Date: 20241031
  Transmission Date: 20250114
  Serious: Yes (Death, Other)
  Sender: AMGEN
  Company Number: US-AMGEN-USASP2024213235

PATIENT

DRUGS (1)
  1. PREDNISONE [Suspect]
     Active Substance: PREDNISONE
     Indication: Immunosuppressant drug therapy
     Dosage: UNK
     Route: 065

REACTIONS (14)
  - Death [Fatal]
  - Pneumonia bacterial [Unknown]
  - Pneumonia fungal [Unknown]
  - Mycobacterial infection [Unknown]
  - Neoplasm malignant [Unknown]
  - Skin cancer [Unknown]
  - Bladder cancer [Unknown]
  - Colon cancer [Unknown]
  - Breast cancer [Unknown]
  - Myelodysplastic syndrome [Unknown]
  - Soft tissue infection [Unknown]
  - Urinary tract infection [Unknown]
  - Gastrointestinal infection [Unknown]
  - Skin infection [Unknown]
